FAERS Safety Report 5441231-1 (Version None)
Quarter: 2007Q3

REPORT INFORMATION
  Report Type: 
  Country: None (occurrence: None)
  Receive Date: 20070901
  Receipt Date: 20061120
  Transmission Date: 20080115
  Serious: Yes (Disabling)
  Sender: FDA-Public Use
  Company Number: US-SANOFI-SYNTHELABO-A03200606826

PATIENT
  Age: 60 Year
  Sex: Male

DRUGS (1)
  1. UROXATRAL [Suspect]
     Indication: PROSTATE EXAMINATION ABNORMAL
     Route: 048
     Dates: start: 20060509, end: 20060609

REACTIONS (6)
  - ARTHRALGIA [None]
  - ASTHENIA [None]
  - BACK PAIN [None]
  - CONDITION AGGRAVATED [None]
  - CYST [None]
  - DIZZINESS [None]
